FAERS Safety Report 12979636 (Version 1)
Quarter: 2016Q4

REPORT INFORMATION
  Report Type: Spontaneous
  Country: FR (occurrence: FR)
  Receive Date: 20161128
  Receipt Date: 20161128
  Transmission Date: 20170207
  Serious: Yes (Disabling)
  Sender: FDA-Public Use
  Company Number: FR-PFIZER INC-2016542119

PATIENT
  Age: 65 Year
  Sex: Female

DRUGS (8)
  1. AVASTIN [Suspect]
     Active Substance: BEVACIZUMAB
     Indication: BREAST CANCER
     Dosage: UNK
     Route: 042
     Dates: start: 201409
  2. EFFERALGAN [Concomitant]
     Active Substance: ACETAMINOPHEN
  3. MOVICOL [Concomitant]
     Active Substance: POLYETHYLENE GLYCOL 3350\POTASSIUM CHLORIDE\SODIUM BICARBONATE\SODIUM CHLORIDE
  4. PACLITAXEL HOSPIRA [Suspect]
     Active Substance: PACLITAXEL
     Indication: BREAST CANCER
     Dosage: UNK
     Route: 042
     Dates: start: 201409
  5. XGEVA [Suspect]
     Active Substance: DENOSUMAB
     Indication: BREAST CANCER
     Dosage: UNK MG, UNK
     Route: 042
     Dates: start: 201409
  6. SOLUPRED /00016217/ [Concomitant]
     Active Substance: PREDNISOLONE
  7. INNOHEP [Concomitant]
     Active Substance: TINZAPARIN SODIUM
  8. LERCAN [Concomitant]
     Active Substance: LERCANIDIPINE

REACTIONS (1)
  - Sudden hearing loss [Not Recovered/Not Resolved]

NARRATIVE: CASE EVENT DATE: 201512
